FAERS Safety Report 25400846 (Version 1)
Quarter: 2025Q2

REPORT INFORMATION
  Report Type: Spontaneous
  Country: ES (occurrence: ES)
  Receive Date: 20250605
  Receipt Date: 20250605
  Transmission Date: 20250717
  Serious: Yes (Hospitalization, Other)
  Sender: AUROBINDO
  Company Number: ES-AUROBINDO-AUR-APL-2025-029000

PATIENT
  Age: 66 Year
  Sex: Male

DRUGS (6)
  1. CARVEDILOL [Suspect]
     Active Substance: CARVEDILOL
     Indication: Hyperthyroidism
     Dosage: 50 MILLIGRAM, TWO TIMES A DAY
     Route: 065
  2. CHOLESTYRAMINE [Suspect]
     Active Substance: CHOLESTYRAMINE
     Indication: Hyperthyroidism
     Route: 065
  3. METHIMAZOLE [Suspect]
     Active Substance: METHIMAZOLE
     Indication: Hyperthyroidism
     Dosage: 60 MILLIGRAM, ONCE A DAY
     Route: 065
  4. PREDNISONE [Suspect]
     Active Substance: PREDNISONE
     Indication: Hyperthyroidism
     Dosage: 50 MILLIGRAM, ONCE A DAY
     Route: 065
  5. ESMOLOL [Suspect]
     Active Substance: ESMOLOL HYDROCHLORIDE
     Indication: Ventricular tachycardia
     Route: 065
  6. ESMOLOL [Suspect]
     Active Substance: ESMOLOL HYDROCHLORIDE
     Indication: Hyperthyroidism

REACTIONS (1)
  - Drug ineffective [Unknown]
